FAERS Safety Report 4709177-1 (Version None)
Quarter: 2005Q3

REPORT INFORMATION
  Report Type: 
  Country: None (occurrence: None)
  Receive Date: 20050708
  Receipt Date: 20050630
  Transmission Date: 20060218
  Serious: Yes (Other)
  Sender: FDA-Public Use
  Company Number: US-JNJFOC-20040501364

PATIENT
  Sex: Female

DRUGS (4)
  1. RISPERDAL [Suspect]
     Route: 049
  2. RISPERDAL [Suspect]
     Route: 049
  3. RISPERDAL [Suspect]
     Indication: SCHIZOAFFECTIVE DISORDER
     Route: 049
  4. WELLBUTRIN [Concomitant]

REACTIONS (23)
  - ACNE [None]
  - BLOOD PROLACTIN INCREASED [None]
  - CONSTIPATION [None]
  - DECREASED APPETITE [None]
  - DELUSION [None]
  - DEPRESSION [None]
  - DIARRHOEA [None]
  - DISTURBANCE IN ATTENTION [None]
  - GALACTORRHOEA [None]
  - GASTRIC POLYPS [None]
  - HALLUCINATION [None]
  - HEADACHE [None]
  - HEPATIC LESION [None]
  - INFERTILITY [None]
  - INSOMNIA [None]
  - MALAISE [None]
  - MEMORY IMPAIRMENT [None]
  - PANIC ATTACK [None]
  - PARANOIA [None]
  - PITUITARY TUMOUR BENIGN [None]
  - VISION BLURRED [None]
  - VISUAL DISTURBANCE [None]
  - WEIGHT DECREASED [None]
